FAERS Safety Report 12567175 (Version 1)
Quarter: 2016Q3

REPORT INFORMATION
  Report Type: Spontaneous
  Country: SE (occurrence: SE)
  Receive Date: 20160718
  Receipt Date: 20160718
  Transmission Date: 20161109
  Serious: Yes (Life-Threatening)
  Sender: FDA-Public Use
  Company Number: SE-TEVA-674280ISR

PATIENT
  Age: 67 Year
  Sex: Male

DRUGS (3)
  1. LYXUMIA [Concomitant]
     Active Substance: LIXISENATIDE
  2. METFORMIN [Concomitant]
     Active Substance: METFORMIN HYDROCHLORIDE
     Route: 048
  3. ENALAPRIL [Suspect]
     Active Substance: ENALAPRIL
     Route: 048

REACTIONS (3)
  - Acute kidney injury [Unknown]
  - Arrhythmia [Unknown]
  - Lactic acidosis [Unknown]
